FAERS Safety Report 6119123-4 (Version None)
Quarter: 2009Q1

REPORT INFORMATION
  Report Type: 
  Country: None (occurrence: None)
  Receive Date: 20090316
  Receipt Date: 20090313
  Transmission Date: 20090719
  Serious: Yes (Death)
  Sender: FDA-Public Use
  Company Number: JP-BAYER-200910752BYL

PATIENT
  Age: 67 Year
  Sex: Male

DRUGS (1)
  1. FLUDARA [Suspect]
     Indication: STEM CELL TRANSPLANT
     Route: 042
     Dates: start: 20081216

REACTIONS (2)
  - INTERSTITIAL LUNG DISEASE [None]
  - RENAL FAILURE [None]
